FAERS Safety Report 6246748-8 (Version None)
Quarter: 2009Q2

REPORT INFORMATION
  Report Type: 
  Country: None (occurrence: None)
  Receive Date: 20090626
  Receipt Date: 20090616
  Transmission Date: 20091009
  Serious: Yes (Other)
  Sender: FDA-Public Use
  Company Number: US-PFIZER INC-2009228419

PATIENT
  Sex: Female
  Weight: 56.699 kg

DRUGS (7)
  1. LOPID [Suspect]
     Indication: BLOOD CHOLESTEROL INCREASED
     Dosage: UNK
     Route: 048
     Dates: start: 19910101
  2. LOPID [Suspect]
     Indication: BLOOD TRIGLYCERIDES INCREASED
  3. EFFEXOR XR [Concomitant]
     Dosage: UNK
  4. LISINOPRIL [Concomitant]
     Dosage: UNK
  5. CARDIZEM [Concomitant]
     Dosage: UNK
  6. ATENOLOL [Concomitant]
     Dosage: UNK
  7. LAMICTAL [Concomitant]
     Dosage: UNK

REACTIONS (4)
  - ARTHRITIS [None]
  - DECREASED APPETITE [None]
  - DEPRESSION [None]
  - WEIGHT DECREASED [None]
